FAERS Safety Report 5800578-7 (Version None)
Quarter: 2008Q3

REPORT INFORMATION
  Report Type: 
  Country: None (occurrence: None)
  Receive Date: 20080703
  Receipt Date: 20080625
  Transmission Date: 20090109
  Serious: Yes (Other)
  Sender: FDA-Public Use
  Company Number: US-PFIZER INC-2008053434

PATIENT
  Sex: Female

DRUGS (1)
  1. XANAX XR [Suspect]
     Indication: PANIC DISORDER
     Dosage: DAILY DOSE:3.5MG
     Route: 048

REACTIONS (3)
  - ABORTION SPONTANEOUS [None]
  - HEPATIC ENZYME INCREASED [None]
  - THYROID DISORDER [None]
